FAERS Safety Report 17076829 (Version 1)
Quarter: 2019Q4

REPORT INFORMATION
  Report Type: Spontaneous
  Country: US (occurrence: US)
  Receive Date: 20191126
  Receipt Date: 20191126
  Transmission Date: 20200122
  Serious: No
  Sender: FDA-Public Use
  Company Number: US-SA-2019SA321851

PATIENT
  Age: 63 Year
  Sex: Female

DRUGS (9)
  1. DUPIXENT [Suspect]
     Active Substance: DUPILUMAB
     Indication: ASTHMA
     Dosage: 300 MG, QOW
     Route: 058
     Dates: start: 20190701
  2. ADVAIR HFA [Concomitant]
     Active Substance: FLUTICASONE PROPIONATE\SALMETEROL XINAFOATE
  3. VITAMINS NOS [Concomitant]
     Active Substance: VITAMINS
  4. VITAMIN D NOS [Concomitant]
     Active Substance: VITAMIN D NOS
  5. BIMATOPROST. [Concomitant]
     Active Substance: BIMATOPROST
  6. ESTRADIOL. [Concomitant]
     Active Substance: ESTRADIOL
  7. PROGESTERONE. [Concomitant]
     Active Substance: PROGESTERONE
  8. MONTELUKAST SODIUM. [Concomitant]
     Active Substance: MONTELUKAST SODIUM
  9. PROAIR RESPICLICK [Concomitant]
     Active Substance: ALBUTEROL SULFATE

REACTIONS (1)
  - Dry skin [Unknown]
